FAERS Safety Report 6087982-X (Version None)
Quarter: 2009Q1

REPORT INFORMATION
  Report Type: 
  Country: None (occurrence: None)
  Receive Date: 20090219
  Receipt Date: 20090211
  Transmission Date: 20090719
  Serious: Yes (Other)
  Sender: FDA-Public Use
  Company Number: CHPA2009US04272

PATIENT
  Age: 85 Year
  Sex: Female

DRUGS (1)
  1. BENEFIBER W/WHEAT DEXTRIN (NCH) (WHEAT DEXTRIN) POWDER [Suspect]
     Indication: IRRITABLE BOWEL SYNDROME
     Dosage: 3 TSP, QD, ORAL
     Route: 048
     Dates: start: 20090122

REACTIONS (3)
  - CONSTIPATION [None]
  - DIVERTICULITIS [None]
  - DRUG INEFFECTIVE [None]
